FAERS Safety Report 6156524-2 (Version None)
Quarter: 2009Q2

REPORT INFORMATION
  Report Type: 
  Country: None (occurrence: None)
  Receive Date: 20090413
  Receipt Date: 20090217
  Transmission Date: 20091009
  Serious: Yes (Death)
  Sender: FDA-Public Use
  Company Number: OPER20090033

PATIENT
  Age: 52 Year
  Sex: Female

DRUGS (2)
  1. OPANA ER [Suspect]
     Indication: PAIN
     Dosage: 60 MG, BID, PER ORAL
     Route: 048
     Dates: start: 20080801, end: 20090101
  2. OPANA [Suspect]
     Indication: BREAKTHROUGH PAIN
     Dosage: 10-20 MG DAILY, PER ORAL
     Route: 048
     Dates: start: 20080801, end: 20090101

REACTIONS (1)
  - PNEUMONIA VIRAL [None]
